FAERS Safety Report 6953191-2 (Version None)
Quarter: 2010Q3

REPORT INFORMATION
  Report Type: 
  Country: None (occurrence: None)
  Receive Date: 20100829
  Receipt Date: 20100603
  Transmission Date: 20110219
  Serious: No
  Sender: FDA-Public Use
  Company Number: US-ABBOTT-10P-163-0648755-00

PATIENT
  Sex: Male
  Weight: 70.37 kg

DRUGS (2)
  1. NIASPAN [Suspect]
     Indication: HIGH DENSITY LIPOPROTEIN DECREASED
     Dosage: AT BEDTIME
     Dates: start: 20060601
  2. NIASPAN [Suspect]
     Indication: CORONARY ARTERY OCCLUSION
     Dates: start: 20100201

REACTIONS (1)
  - HIGH DENSITY LIPOPROTEIN ABNORMAL [None]
